FAERS Safety Report 24448326 (Version 1)
Quarter: 2024Q4

REPORT INFORMATION
  Report Type: Spontaneous
  Country: US (occurrence: US)
  Receive Date: 20241017
  Receipt Date: 20241017
  Transmission Date: 20250115
  Serious: No
  Sender: ROCHE
  Company Number: US-ROCHE-10000100627

PATIENT
  Sex: Female
  Weight: 93.89 kg

DRUGS (4)
  1. RITUXIMAB [Suspect]
     Active Substance: RITUXIMAB
     Indication: Sarcoidosis
     Dosage: LAST DOSE IN /AUG/2023?RECEIVED RITUXIMAB TWICE
     Route: 065
     Dates: start: 202303
  2. PREDNISONE [Concomitant]
     Active Substance: PREDNISONE
     Dosage: FOR 3 MONTHS
     Route: 042
  3. BENADRYL [Concomitant]
     Active Substance: DIPHENHYDRAMINE HYDROCHLORIDE
  4. METHOTREXATE [Concomitant]
     Active Substance: METHOTREXATE

REACTIONS (4)
  - Ill-defined disorder [Recovered/Resolved]
  - Gastrointestinal disorder [Recovered/Resolved]
  - Dizziness [Recovered/Resolved]
  - Off label use [Unknown]
